FAERS Safety Report 6544852-8 (Version None)
Quarter: 2010Q1

REPORT INFORMATION
  Report Type: 
  Country: None (occurrence: None)
  Receive Date: 20100121
  Receipt Date: 20100114
  Transmission Date: 20100710
  Serious: Yes (Hospitalization)
  Sender: FDA-Public Use
  Company Number: ES-PFIZER INC-2010005631

PATIENT
  Age: 56 Year
  Sex: Male

DRUGS (6)
  1. CARDYL [Suspect]
     Indication: DYSLIPIDAEMIA
     Dosage: 40 MG, 1X/DAY
     Route: 048
     Dates: start: 20090806
  2. EULITOP - SLOW RELEASE [Interacting]
     Indication: DYSLIPIDAEMIA
     Dosage: 1.2 G, 3X/DAY
     Route: 048
     Dates: start: 20090806
  3. ATENOLOL [Concomitant]
     Indication: HYPERTENSION
     Dosage: 50 MG, 1X/DAY
     Route: 048
     Dates: start: 20090806
  4. CINACALCET [Concomitant]
     Indication: HYPERPARATHYROIDISM
     Dosage: 60 MG, 1X/DAY
     Route: 048
     Dates: start: 20090806
  5. NORVASC [Concomitant]
     Indication: HYPERTENSION
     Dosage: 10 MG, 1X/DAY
     Route: 048
     Dates: start: 20090806
  6. RENITEC [Concomitant]
     Indication: HYPERTENSION
     Dosage: 40 MG, 2X/DAY
     Route: 048
     Dates: start: 20090806

REACTIONS (3)
  - DRUG INTERACTION [None]
  - RENAL FAILURE ACUTE [None]
  - RHABDOMYOLYSIS [None]
